FAERS Safety Report 7549979-X (Version None)
Quarter: 2011Q2

REPORT INFORMATION
  Report Type: 
  Country: None (occurrence: None)
  Receive Date: 20110615
  Receipt Date: 20110606
  Transmission Date: 20111010
  Serious: Yes (Hospitalization)
  Sender: FDA-Public Use
  Company Number: US-ASTRAZENECA-2011SE03867

PATIENT
  Sex: Male

DRUGS (2)
  1. ZESTRIL [Suspect]
     Indication: HYPERTENSION
     Route: 048
  2. METOPROLOL TARTRATE [Suspect]
     Indication: ARRHYTHMIA
     Dosage: DAILY
     Route: 048

REACTIONS (5)
  - INCORRECT DOSE ADMINISTERED [None]
  - WRONG TECHNIQUE IN DRUG USAGE PROCESS [None]
  - CEREBROVASCULAR ACCIDENT [None]
  - BLOOD PRESSURE INADEQUATELY CONTROLLED [None]
  - INAPPROPRIATE SCHEDULE OF DRUG ADMINISTRATION [None]
